FAERS Safety Report 15500013 (Version 1)
Quarter: 2018Q4

REPORT INFORMATION
  Report Type: Other
  Country: TR (occurrence: TR)
  Receive Date: 20181015
  Receipt Date: 20181015
  Transmission Date: 20190205
  Serious: Yes (Death, Hospitalization)
  Sender: FDA-Public Use
  Company Number: TR-ACTELION-A-CH2018-180214

PATIENT
  Age: 15 Year
  Sex: Male
  Weight: 51 kg

DRUGS (3)
  1. BOSENTAN. [Suspect]
     Active Substance: BOSENTAN
     Indication: PULMONARY ARTERIAL HYPERTENSION
     Dosage: 125 MG, BID
     Route: 048
     Dates: start: 20090601, end: 20130208
  2. SILDENAFIL. [Concomitant]
     Active Substance: SILDENAFIL
     Indication: DISEASE PROGRESSION
     Dosage: 40 MG, TID
     Route: 048
     Dates: start: 20100614, end: 20130208
  3. ILOPROST. [Concomitant]
     Active Substance: ILOPROST
     Indication: DISEASE PROGRESSION
     Dosage: 10 MCG, Q4HRS
     Route: 055
     Dates: start: 20111212, end: 20130208

REACTIONS (2)
  - Disease progression [Fatal]
  - Pulmonary arterial hypertension [Fatal]
